FAERS Safety Report 5876982-8 (Version None)
Quarter: 2008Q3

REPORT INFORMATION
  Report Type: 
  Country: None (occurrence: None)
  Receive Date: 20080910
  Receipt Date: 20080901
  Transmission Date: 20090109
  Serious: Yes (Other)
  Sender: FDA-Public Use
  Company Number: PHHY2008GB18318

PATIENT
  Age: 38 Year

DRUGS (3)
  1. AREDIA [Suspect]
     Dosage: 60 MG, UNK
     Route: 042
     Dates: start: 20080801
  2. ORAMORPH SR [Concomitant]
     Indication: PAIN
     Dosage: 20 MG, QD
     Route: 048
  3. MORPHINE [Concomitant]
     Indication: PAIN
     Dosage: 20MG {6 HOURS
     Route: 030

REACTIONS (5)
  - ACUTE PHASE REACTION [None]
  - CHILLS [None]
  - NAUSEA [None]
  - PYREXIA [None]
  - VOMITING [None]
